FAERS Safety Report 9885499 (Version 1)
Quarter: 2014Q1

REPORT INFORMATION
  Report Type: Report from Study
  Country: US (occurrence: US)
  Receive Date: 20140210
  Receipt Date: 20140210
  Transmission Date: 20141002
  Serious: Yes (Other)
  Sender: FDA-Public Use
  Company Number: US-ABBVIE-14P-163-1196640-00

PATIENT
  Age: 44 Year
  Sex: Female
  Weight: 73.09 kg

DRUGS (5)
  1. HUMIRA [Suspect]
     Indication: RHEUMATOID ARTHRITIS
     Dates: start: 201206, end: 201306
  2. HUMIRA [Suspect]
     Dates: start: 201306
  3. NAPROXEN [Concomitant]
     Indication: PAIN
     Dosage: 1 TO 2 DAILY AS NEEDED
  4. METHOTREXATE [Concomitant]
     Indication: PRODUCT USED FOR UNKNOWN INDICATION
  5. PREDNISONE [Concomitant]
     Indication: PRODUCT USED FOR UNKNOWN INDICATION

REACTIONS (15)
  - Cyst [Unknown]
  - Uterine leiomyoma [Unknown]
  - Uterine haemorrhage [Unknown]
  - Arthralgia [Unknown]
  - Sinusitis [Unknown]
  - Sinus congestion [Unknown]
  - Upper-airway cough syndrome [Unknown]
  - Throat irritation [Unknown]
  - Cough [Unknown]
  - Asthma [Unknown]
  - Chest discomfort [Unknown]
  - Dyspnoea [Unknown]
  - Wheezing [Unknown]
  - Dysphonia [Unknown]
  - Visual impairment [Unknown]
